FAERS Safety Report 4311309-4 (Version None)
Quarter: 2004Q1

REPORT INFORMATION
  Report Type: 
  Country: None (occurrence: None)
  Receive Date: 20040302
  Receipt Date: 20030808
  Transmission Date: 20041129
  Serious: Yes (Life-Threatening)
  Sender: FDA-Public Use
  Company Number: BDI-005364

PATIENT
  Age: 49 Year
  Sex: Male

DRUGS (3)
  1. ISOVUE-370 [Suspect]
     Indication: ABDOMINAL PAIN
     Dosage: 118 ML ONCE IV
     Dates: start: 20030806, end: 20030806
  2. ISOVUE-370 [Suspect]
     Indication: COMPUTERISED TOMOGRAM
     Dosage: 118 ML ONCE IV
     Dates: start: 20030806, end: 20030806
  3. PREDNISONE [Concomitant]

REACTIONS (1)
  - DYSPNOEA [None]
